FAERS Safety Report 20840814 (Version 1)
Quarter: 2022Q2

REPORT INFORMATION
  Report Type: Other
  Country: AU (occurrence: None)
  Receive Date: 20220517
  Receipt Date: 20220517
  Transmission Date: 20220721
  Serious: No
  Sender: FDA-Public Use
  Company Number: AU-ROCHE-3098084

PATIENT
  Sex: Male

DRUGS (1)
  1. OCREVUS [Suspect]
     Active Substance: OCRELIZUMAB
     Indication: Relapsing-remitting multiple sclerosis
     Route: 065
     Dates: start: 20201106

REACTIONS (3)
  - SARS-CoV-2 test positive [Recovered/Resolved]
  - Gastroenteritis [Recovered/Resolved]
  - Lower respiratory tract infection [Recovered/Resolved]
